FAERS Safety Report 5164780-2 (Version None)
Quarter: 2006Q4

REPORT INFORMATION
  Report Type: 
  Country: None (occurrence: None)
  Receive Date: 20061124
  Receipt Date: 20061110
  Transmission Date: 20070319
  Serious: Yes (Disabling, Other)
  Sender: FDA-Public Use
  Company Number: 232480

PATIENT
  Age: 48 Year
  Sex: Female
  Weight: 63 kg

DRUGS (4)
  1. HERCEPTIN [Suspect]
     Indication: BREAST CANCER
     Dosage: 380 MG, Q3W, INTRAVENOUS
     Route: 042
     Dates: start: 20060301, end: 20061019
  2. EFFEXOR [Concomitant]
  3. LEXAPRO [Concomitant]
  4. NEURONTIN [Concomitant]

REACTIONS (4)
  - LUPUS-LIKE SYNDROME [None]
  - MYALGIA [None]
  - NEUROPATHY [None]
  - SERUM SICKNESS [None]
